FAERS Safety Report 25041266 (Version 1)
Quarter: 2025Q1

REPORT INFORMATION
  Report Type: Spontaneous
  Country: US (occurrence: US)
  Receive Date: 20250305
  Receipt Date: 20250305
  Transmission Date: 20250408
  Serious: No
  Sender: ABBVIE
  Company Number: US-ABBVIE-6154043

PATIENT
  Sex: Female

DRUGS (1)
  1. UPADACITINIB [Suspect]
     Active Substance: UPADACITINIB
     Indication: Eosinophilic fasciitis
     Route: 048

REACTIONS (2)
  - Actinic keratosis [Unknown]
  - Off label use [Unknown]
